FAERS Safety Report 23004676 (Version 5)
Quarter: 2024Q1

REPORT INFORMATION
  Report Type: Report from Study
  Country: US (occurrence: US)
  Receive Date: 20230928
  Receipt Date: 20240220
  Transmission Date: 20240410
  Serious: Yes (Hospitalization, Other)
  Sender: FDA-Public Use
  Company Number: US-BIOVITRUM-2023-US-011749

PATIENT
  Age: 42 Year
  Sex: Female

DRUGS (5)
  1. KINERET [Suspect]
     Active Substance: ANAKINRA
     Indication: Rheumatoid arthritis
     Dosage: 100 MG EVERY 8 HOURS (TID), 100, MCG/ML
     Route: 058
  2. KINERET [Suspect]
     Active Substance: ANAKINRA
     Indication: Systemic lupus erythematosus
     Dosage: 3 PER DAY?QF
     Route: 058
  3. KINERET [Suspect]
     Active Substance: ANAKINRA
     Dosage: 4 PER DAY
     Route: 058
  4. KINERET [Suspect]
     Active Substance: ANAKINRA
     Dosage: QF
     Route: 058
  5. KINERET [Suspect]
     Active Substance: ANAKINRA
     Dosage: QD
     Route: 058

REACTIONS (18)
  - Rheumatoid arthritis [Unknown]
  - Systemic lupus erythematosus [Unknown]
  - Prothrombin time abnormal [Unknown]
  - International normalised ratio abnormal [Unknown]
  - Infection [Unknown]
  - Coagulopathy [Unknown]
  - Sepsis [Unknown]
  - Kidney infection [Unknown]
  - Intestinal obstruction [Unknown]
  - Therapeutic product effect incomplete [Unknown]
  - Fatigue [Unknown]
  - Product use issue [Unknown]
  - Intentional product misuse [Unknown]
  - Arthropathy [Unknown]
  - Product dose omission issue [Unknown]
  - Illness [Unknown]
  - Hernia [Unknown]
  - Off label use [Unknown]
